FAERS Safety Report 5711911-9 (Version None)
Quarter: 2008Q2

REPORT INFORMATION
  Report Type: 
  Country: None (occurrence: None)
  Receive Date: 20080416
  Receipt Date: 20080331
  Transmission Date: 20081010
  Serious: Yes (Other)
  Sender: FDA-Public Use
  Company Number: 8031499

PATIENT
  Age: 8 Year
  Sex: Male

DRUGS (1)
  1. PREDNISOLONE [Suspect]
     Indication: DUCHENNE MUSCULAR DYSTROPHY

REACTIONS (4)
  - ABNORMAL BEHAVIOUR [None]
  - DECREASED ACTIVITY [None]
  - MYOGLOBINURIA [None]
  - RHABDOMYOLYSIS [None]
